FAERS Safety Report 8796399 (Version 2)
Quarter: 2013Q1

REPORT INFORMATION
  Report Type: Spontaneous
  Country: AU (occurrence: AU)
  Receive Date: 20120920
  Receipt Date: 20130326
  Transmission Date: 20140127
  Serious: Yes (Hospitalization, Other)
  Sender: FDA-Public Use
  Company Number: PHHY2012AU081069

PATIENT
  Age: 83 Year
  Sex: Male

DRUGS (2)
  1. ACLASTA [Suspect]
     Dosage: 5 MG,
     Route: 042
     Dates: start: 20100908
  2. ACLASTA [Suspect]
     Dosage: 5 MG,
     Route: 042
     Dates: start: 20110908

REACTIONS (1)
  - Deep vein thrombosis postoperative [Recovering/Resolving]
